FAERS Safety Report 7423986-X (Version None)
Quarter: 2011Q2

REPORT INFORMATION
  Report Type: 
  Country: None (occurrence: None)
  Receive Date: 20110419
  Receipt Date: 20110412
  Transmission Date: 20111010
  Serious: Yes (Other)
  Sender: FDA-Public Use
  Company Number: B0713886A

PATIENT
  Age: 38 Year
  Sex: Male
  Weight: 77 kg

DRUGS (1)
  1. FLIXONASE [Suspect]
     Dosage: 1PUFF TWICE PER DAY
     Route: 045
     Dates: start: 20100904

REACTIONS (1)
  - ANOSMIA [None]
